FAERS Safety Report 15251345 (Version 1)
Quarter: 2018Q3

REPORT INFORMATION
  Report Type: Spontaneous
  Country: FR (occurrence: FR)
  Receive Date: 20180807
  Receipt Date: 20180807
  Transmission Date: 20181010
  Serious: Yes (Other)
  Sender: FDA-Public Use
  Company Number: FR-MYLANLABS-2018M1059002

PATIENT
  Age: 30 Year
  Sex: Female

DRUGS (3)
  1. PYRIDOXINE [Suspect]
     Active Substance: PYRIDOXINE
     Dosage: 500 MG, QD
  2. PYRIDOXINE [Suspect]
     Active Substance: PYRIDOXINE
     Indication: HOMOCYSTINURIA
     Dosage: 1250 MG, QD, FROM APPROXIMATELY AGE 10 TO AGE 20 YEARS
     Route: 048
  3. PYRIDOXINE [Suspect]
     Active Substance: PYRIDOXINE
     Dosage: 1750 MG, QD, FROM APPROXIMATELY AGE 20 TO AGE 30 YEARS
     Route: 048

REACTIONS (4)
  - Paraesthesia [Recovered/Resolved]
  - Nervous system disorder [Recovered/Resolved]
  - Ataxia [Recovered/Resolved]
  - Gait disturbance [Recovered/Resolved]
